FAERS Safety Report 13946178 (Version 1)
Quarter: 2017Q3

REPORT INFORMATION
  Report Type: Spontaneous
  Country: PL (occurrence: PL)
  Receive Date: 20170907
  Receipt Date: 20170907
  Transmission Date: 20171128
  Serious: Yes (Other)
  Sender: FDA-Public Use
  Company Number: PL-ACCORD-058219

PATIENT
  Age: 59 Year
  Sex: Female
  Weight: 42 kg

DRUGS (2)
  1. FLUOROURACIL ACCORD [Suspect]
     Active Substance: FLUOROURACIL
     Indication: RETROPERITONEAL NEOPLASM
     Route: 042
     Dates: start: 20150907, end: 20160209
  2. OXALIPLATIN FRESENIUS KABI [Suspect]
     Active Substance: OXALIPLATIN
     Indication: RETROPERITONEAL NEOPLASM
     Route: 042
     Dates: start: 20150907, end: 20160209

REACTIONS (2)
  - Off label use [Unknown]
  - Polyneuropathy [Recovering/Resolving]

NARRATIVE: CASE EVENT DATE: 20160222
